FAERS Safety Report 6166763-2 (Version None)
Quarter: 2009Q2

REPORT INFORMATION
  Report Type: 
  Country: None (occurrence: None)
  Receive Date: 20090424
  Receipt Date: 20090414
  Transmission Date: 20091009
  Serious: Yes (Hospitalization)
  Sender: FDA-Public Use
  Company Number: US-PFIZER INC-2009197268

PATIENT
  Sex: Female
  Weight: 65.306 kg

DRUGS (11)
  1. SUTENT [Suspect]
     Indication: NON-SMALL CELL LUNG CANCER
     Dosage: 25 MG, 1X/DAY
     Route: 048
     Dates: start: 20090313, end: 20090409
  2. SUTENT [Suspect]
     Dosage: 12.5 MG, 1X/DAY
     Route: 048
     Dates: start: 20090313, end: 20090409
  3. SYNTHROID [Concomitant]
     Dosage: UNK
  4. TRIAMTERENE AND HYDROCHLOROTHIAZIDE [Concomitant]
  5. METOPROLOL [Concomitant]
     Dosage: UNK
  6. CLONIDINE HCL [Concomitant]
  7. NORVASC [Concomitant]
  8. PLAVIX [Concomitant]
  9. AMLODIPINE [Concomitant]
  10. LESCOL [Concomitant]
  11. MEGACE [Concomitant]

REACTIONS (1)
  - CONFUSIONAL STATE [None]
